FAERS Safety Report 5831528-5 (Version None)
Quarter: 2008Q3

REPORT INFORMATION
  Report Type: 
  Country: None (occurrence: None)
  Receive Date: 20080801
  Receipt Date: 20080722
  Transmission Date: 20090109
  Serious: Yes (Other)
  Sender: FDA-Public Use
  Company Number: US-MERCK-0807USA04321

PATIENT
  Age: 16 Year
  Sex: Female

DRUGS (2)
  1. SINGULAIR [Suspect]
     Route: 048
     Dates: start: 20020101
  2. SYNTHROID [Concomitant]
     Indication: HYPOTHYROIDISM
     Route: 065

REACTIONS (1)
  - SUICIDAL IDEATION [None]
